FAERS Safety Report 19482417 (Version 2)
Quarter: 2021Q3

REPORT INFORMATION
  Report Type: Spontaneous
  Country: US (occurrence: US)
  Receive Date: 20210701
  Receipt Date: 20210713
  Transmission Date: 20211014
  Serious: Yes (Hospitalization, Other)
  Sender: FDA-Public Use
  Company Number: US-SANOFI-SYNTHELABO-A01200708016

PATIENT
  Age: 28 Year
  Sex: Female

DRUGS (7)
  1. OXYMETAZOLINE [Suspect]
     Active Substance: OXYMETAZOLINE
     Indication: VASOCONSTRICTION
     Dosage: DOSAGE FORM: SPRAY, 16 TOTAL SPRAYS
     Route: 045
  2. LIDOCAINE. [Suspect]
     Active Substance: LIDOCAINE
     Indication: VASOCONSTRICTION
     Dosage: 7 ML DOSAGE FORM: UNKNOWN, 0.5%
  3. LIDOCAINE. [Suspect]
     Active Substance: LIDOCAINE
     Indication: ANAESTHESIA
  4. ORTHO EVRA [Concomitant]
     Active Substance: ETHINYL ESTRADIOL\NORELGESTROMIN
     Indication: CONTRACEPTION
     Dosage: UNK
     Route: 062
  5. EPINEPHRINE. [Suspect]
     Active Substance: EPINEPHRINE
     Indication: ANAESTHESIA
  6. OXYMETAZOLINE [Suspect]
     Active Substance: OXYMETAZOLINE
     Indication: ENDOTRACHEAL INTUBATION
  7. EPINEPHRINE. [Suspect]
     Active Substance: EPINEPHRINE
     Indication: VASOCONSTRICTION
     Dosage: 7 ML, DOSAGE FORM: UNKNOWN, 1:200,000

REACTIONS (11)
  - Nodal rhythm [Recovered/Resolved]
  - Hypertension [Recovered/Resolved]
  - Heart rate decreased [Recovered/Resolved]
  - Pulmonary congestion [Recovered/Resolved]
  - Tricuspid valve incompetence [Recovered/Resolved]
  - Rales [Recovered/Resolved]
  - Cardiac murmur [Recovered/Resolved]
  - Acute pulmonary oedema [Recovered/Resolved]
  - Mitral valve incompetence [Recovered/Resolved]
  - Ventricular hypokinesia [Recovered/Resolved]
  - Intentional overdose [Recovered/Resolved]
